FAERS Safety Report 7407609-1 (Version None)
Quarter: 2011Q2

REPORT INFORMATION
  Report Type: 
  Country: None (occurrence: None)
  Receive Date: 20110405
  Receipt Date: 20110328
  Transmission Date: 20111010
  Serious: Yes (Death)
  Sender: FDA-Public Use
  Company Number: DAV-AE-MTX-11-004

PATIENT
  Age: 80 Year
  Sex: Female

DRUGS (7)
  1. DIGOXIN [Concomitant]
  2. ACETAMINOPHEN [Concomitant]
  3. NAPROXEN [Concomitant]
  4. FUROSEMIDE [Concomitant]
  5. METHOTREXATE [Suspect]
     Indication: RHEUMATOID ARTHRITIS
     Dosage: 20 MG/DAY
  6. METOPROLOL [Concomitant]
  7. LISINOPRIL [Concomitant]

REACTIONS (5)
  - WEIGHT INCREASED [None]
  - TOXICITY TO VARIOUS AGENTS [None]
  - RENAL IMPAIRMENT [None]
  - OEDEMA [None]
  - HAEMORRHAGE [None]
